FAERS Safety Report 4781903-5 (Version None)
Quarter: 2005Q3

REPORT INFORMATION
  Report Type: 
  Country: None (occurrence: None)
  Receive Date: 20050927
  Receipt Date: 20050917
  Transmission Date: 20060218
  Serious: Yes (Hospitalization, Other)
  Sender: FDA-Public Use
  Company Number: 2005121262

PATIENT
  Age: 70 Year
  Sex: Female
  Weight: 77.1115 kg

DRUGS (5)
  1. LIPITOR [Suspect]
     Indication: BLOOD CHOLESTEROL INCREASED
     Dosage: 10 MG (1 IN 1 D)
  2. VIOXX [Suspect]
     Indication: ILL-DEFINED DISORDER
     Dates: end: 20030101
  3. VASOTEC (ENALAPRIL MELEATE) [Concomitant]
  4. ZOLOFT [Concomitant]
  5. ALL OTHER THERAPEUTIC PRODUCT (ALL OTHER THERAPEUTIC PRODUCTS) [Concomitant]

REACTIONS (7)
  - ARRHYTHMIA [None]
  - COLONIC HAEMORRHAGE [None]
  - CORONARY ARTERY OCCLUSION [None]
  - MYALGIA [None]
  - MYOCARDIAL ISCHAEMIA [None]
  - OSTEOARTHRITIS [None]
  - THERAPY NON-RESPONDER [None]
